FAERS Safety Report 21436423 (Version 2)
Quarter: 2022Q4

REPORT INFORMATION
  Report Type: Report from Study
  Country: FR (occurrence: FR)
  Receive Date: 20221010
  Receipt Date: 20221013
  Transmission Date: 20230113
  Serious: Yes (Hospitalization)
  Sender: FDA-Public Use
  Company Number: FR-BRISTOL-MYERS SQUIBB COMPANY-2022-117037

PATIENT
  Age: 76 Year
  Sex: Female
  Weight: 51 kg

DRUGS (2)
  1. IPILIMUMAB [Suspect]
     Active Substance: IPILIMUMAB
     Indication: Thymic carcinoma
     Dosage: (1MG/KG)
     Route: 042
     Dates: start: 20220810, end: 20220923
  2. NIVOLUMAB [Suspect]
     Active Substance: NIVOLUMAB
     Indication: Thymic carcinoma
     Route: 042
     Dates: start: 20220810, end: 20220923

REACTIONS (1)
  - Viral infection [Recovered/Resolved]

NARRATIVE: CASE EVENT DATE: 20221003
